FAERS Safety Report 9125596 (Version 2)
Quarter: 2014Q4

REPORT INFORMATION
  Report Type: Spontaneous
  Country: US (occurrence: US)
  Receive Date: 20130227
  Receipt Date: 20141125
  Transmission Date: 20150529
  Serious: Yes (Hospitalization, Other)
  Sender: FDA-Public Use
  Company Number: GXBR2013US000659

PATIENT
  Age: 74 Year
  Sex: Male
  Weight: 87.75 kg

DRUGS (11)
  1. ARICEPT [Suspect]
     Active Substance: DONEPEZIL HYDROCHLORIDE
     Indication: AMNESIA
     Dosage: 10 MG QD
     Route: 048
     Dates: start: 20100903
  2. AZILECT [Suspect]
     Active Substance: RASAGILINE MESYLATE
     Dosage: 0.5 MG, QD
     Route: 048
     Dates: start: 201209, end: 20121001
  3. AZILECT [Suspect]
     Active Substance: RASAGILINE MESYLATE
     Indication: TREMOR
     Dosage: 0.5 MG, QD
     Route: 048
     Dates: start: 20131216
  4. CRESTOR [Suspect]
     Active Substance: ROSUVASTATIN CALCIUM
     Indication: PRODUCT USED FOR UNKNOWN INDICATION
     Dosage: 10 MG, QD
     Route: 048
     Dates: start: 200308, end: 201302
  5. PLETAL [Concomitant]
     Active Substance: CILOSTAZOL
     Indication: ATRIAL FIBRILLATION
     Dosage: UNK DF, UNK
     Route: 065
     Dates: start: 200308
  6. CRESTOR [Suspect]
     Active Substance: ROSUVASTATIN CALCIUM
     Dosage: 10 MG, THREE TIMES PER WEEK
     Route: 048
     Dates: start: 201302, end: 20140407
  7. AMIODARONE HYDROCHLORIDE. [Suspect]
     Active Substance: AMIODARONE HYDROCHLORIDE
     Indication: ATRIAL FIBRILLATION
     Dosage: 300 MG, QD
     Route: 048
     Dates: start: 200301
  8. AMIODARONE HYDROCHLORIDE. [Suspect]
     Active Substance: AMIODARONE HYDROCHLORIDE
     Dosage: 200 MG, QD
     Route: 048
     Dates: start: 201302
  9. NAMENDA [Suspect]
     Active Substance: MEMANTINE HYDROCHLORIDE
     Indication: AMNESIA
     Dosage: UNK DF, UNK
     Route: 048
     Dates: start: 201109
  10. COUMADIN [Suspect]
     Active Substance: WARFARIN SODIUM
     Indication: ATRIAL FIBRILLATION
     Dosage: UNK DF, UNK
     Route: 048
     Dates: start: 200301, end: 200308
  11. ARICEPT [Suspect]
     Active Substance: DONEPEZIL HYDROCHLORIDE
     Dosage: 5 MG, QD
     Route: 048
     Dates: start: 200812, end: 20100902

REACTIONS (22)
  - Dyspnoea [Recovered/Resolved]
  - Chest pain [Recovered/Resolved]
  - Thyroid disorder [Unknown]
  - Dyspnoea exertional [Not Recovered/Not Resolved]
  - Amnesia [Not Recovered/Not Resolved]
  - Dizziness [Recovered/Resolved]
  - Malaise [Not Recovered/Not Resolved]
  - Deafness [Recovered/Resolved]
  - Rectal haemorrhage [Recovered/Resolved]
  - Tremor [Recovering/Resolving]
  - Euphoric mood [Recovered/Resolved]
  - Influenza like illness [Unknown]
  - Hypersomnia [Not Recovered/Not Resolved]
  - Alanine aminotransferase increased [Unknown]
  - Abdominal discomfort [Recovering/Resolving]
  - Cerebrovascular accident [Unknown]
  - Transient ischaemic attack [Unknown]
  - Loss of consciousness [Recovered/Resolved]
  - Fatigue [Not Recovered/Not Resolved]
  - Drug-induced liver injury [Unknown]
  - Aspartate aminotransferase increased [Unknown]
  - Hypertension [Not Recovered/Not Resolved]

NARRATIVE: CASE EVENT DATE: 200308
